FAERS Safety Report 8421171 (Version 4)
Quarter: 2013Q1

REPORT INFORMATION
  Report Type: Spontaneous
  Country: US (occurrence: US)
  Receive Date: 20120222
  Receipt Date: 20130111
  Transmission Date: 20140127
  Serious: Yes (Other)
  Sender: FDA-Public Use
  Company Number: US-ASTRAZENECA-2011SE71006

PATIENT
  Age: 73 Year
  Sex: Female
  Weight: 82.1 kg

DRUGS (23)
  1. ATENOLOL [Suspect]
     Route: 065
  2. SYMBICORT [Suspect]
     Dosage: 80/4.5 MCG TWO PUFFS BID
     Route: 055
  3. LISINOPRIL [Suspect]
     Route: 048
  4. TOPROL XL [Suspect]
     Route: 048
     Dates: end: 20121115
  5. ASPIRIN [Concomitant]
     Route: 048
  6. ALLOPURINOL [Concomitant]
     Route: 048
     Dates: end: 20121115
  7. COLCHICINE [Concomitant]
     Route: 048
  8. VALIUM [Concomitant]
     Route: 048
  9. ALBUTEROL SULFATE [Concomitant]
     Route: 048
  10. PROVENTIL HFA [Concomitant]
     Dosage: 108 (90 BASE) MCG/ACT 2 PUFFS AS NEEDED INHALATION EVERY 4 HRS
  11. OXYCODONE/APAP [Concomitant]
     Dosage: 5/325 MG 1 TABLET BID
     Route: 048
  12. OXYCODONE/APAP [Concomitant]
     Route: 048
     Dates: end: 20121115
  13. LASIX [Concomitant]
     Route: 048
  14. CELEXA [Concomitant]
     Route: 048
     Dates: end: 20121115
  15. CALAN SR [Concomitant]
     Route: 048
  16. LIPITOR [Concomitant]
     Route: 048
  17. VENTOLIN HFA [Concomitant]
     Dosage: 108 (90 BASE) MCG/ACT 2 PUFFS AS NEEDED INHALATION EVERY 4 HRS
  18. CITALOPRAM HYDROBROMIDE [Concomitant]
     Route: 048
  19. FUROSEMIDE [Concomitant]
     Route: 048
  20. FORADIL AEROLIZER [Concomitant]
     Route: 055
  21. WELLBUTRIN SR [Concomitant]
     Route: 048
  22. VERAPAMIL HCL [Concomitant]
     Dosage: 1 AND 1/2 TABLET EVERY MORNING WITH FOOD
     Route: 048
  23. DILAUDID [Concomitant]
     Route: 048

REACTIONS (27)
  - Breast cancer [Unknown]
  - Pulmonary mass [Unknown]
  - Upper limb fracture [Unknown]
  - Joint dislocation [Unknown]
  - Humerus fracture [Unknown]
  - Angina pectoris [Unknown]
  - Osteoarthritis [Unknown]
  - Essential hypertension [Unknown]
  - Hyperlipidaemia [Unknown]
  - Anxiety [Unknown]
  - Arthritis [Unknown]
  - Arteriosclerosis coronary artery [Unknown]
  - Osteoarthritis [Unknown]
  - Arthralgia [Unknown]
  - Gout [Unknown]
  - Pulmonary mass [Unknown]
  - Fall [Unknown]
  - Limb injury [Unknown]
  - Contusion [Unknown]
  - Pain [Unknown]
  - Gastrooesophageal reflux disease [Unknown]
  - Asthma [Unknown]
  - Chronic obstructive pulmonary disease [Unknown]
  - Musculoskeletal pain [Unknown]
  - Pain in extremity [Unknown]
  - Hepatitis [Unknown]
  - Depression [Unknown]
